FAERS Safety Report 14159069 (Version 2)
Quarter: 2017Q4

REPORT INFORMATION
  Report Type: Report from Study
  Country: US (occurrence: US)
  Receive Date: 20171106
  Receipt Date: 20171206
  Transmission Date: 20180321
  Serious: Yes (Other)
  Sender: FDA-Public Use
  Company Number: PHEH2017US035181

PATIENT
  Age: 12 Year

DRUGS (1)
  1. AFINITOR [Suspect]
     Active Substance: EVEROLIMUS
     Indication: ASTROCYTOMA, LOW GRADE
     Dosage: 2.5 MG, QD (ONCE DAILTY)
     Route: 048
     Dates: start: 20140404

REACTIONS (7)
  - Scoliosis [Unknown]
  - Hypotension [Unknown]
  - Croup infectious [Unknown]
  - Anaemia [Unknown]
  - Oxygen saturation decreased [Unknown]
  - Seizure [Unknown]
  - Bilirubin urine [Unknown]

NARRATIVE: CASE EVENT DATE: 20170922
